FAERS Safety Report 7586430-8 (Version None)
Quarter: 2011Q3

REPORT INFORMATION
  Report Type: 
  Country: None (occurrence: None)
  Receive Date: 20110701
  Receipt Date: 20110622
  Transmission Date: 20111222
  Serious: Yes (Other)
  Sender: FDA-Public Use
  Company Number: B0727706A

PATIENT
  Age: 26 Year
  Sex: Female

DRUGS (5)
  1. PROPOFOL [Concomitant]
     Route: 042
  2. DEXAMETHASONE [Suspect]
     Route: 065
  3. FENTANYL [Concomitant]
     Route: 042
  4. SEVOFLURANE [Concomitant]
  5. ONDANSETRON [Suspect]
     Indication: PROPHYLAXIS

REACTIONS (4)
  - PHOTOPHOBIA [None]
  - NAUSEA [None]
  - HEADACHE [None]
  - MIGRAINE [None]
